FAERS Safety Report 4562414-9 (Version None)
Quarter: 2005Q1

REPORT INFORMATION
  Report Type: 
  Country: None (occurrence: None)
  Receive Date: 20050127
  Receipt Date: 20041122
  Transmission Date: 20050727
  Serious: No
  Sender: FDA-Public Use
  Company Number: US-BRISTOL-MYERS SQUIBB COMPANY-12773297

PATIENT
  Age: 31 Year
  Sex: Female
  Weight: 91 kg

DRUGS (5)
  1. KENALOG [Suspect]
     Indication: BACK PAIN
     Dosage: INJECTIONS GIVEN IN WEEKLY INTERVALS
     Route: 051
     Dates: start: 20040801
  2. CYLERT [Concomitant]
  3. LEXAPRO [Concomitant]
  4. ZONEGRAN [Concomitant]
  5. INDOCIN [Concomitant]

REACTIONS (7)
  - ACNE [None]
  - DIARRHOEA [None]
  - LETHARGY [None]
  - NAUSEA [None]
  - OEDEMA [None]
  - RASH PRURITIC [None]
  - VOMITING [None]
